FAERS Safety Report 5145403-5 (Version None)
Quarter: 2006Q4

REPORT INFORMATION
  Report Type: 
  Country: None (occurrence: None)
  Receive Date: 20061027
  Receipt Date: 20061017
  Transmission Date: 20070319
  Serious: Yes (Hospitalization)
  Sender: FDA-Public Use
  Company Number: 200610788

PATIENT
  Age: 35 Year
  Sex: 0

DRUGS (1)
  1. SANDOGLOBULINA (IMMUNOGLOBULIN HUMAN NORMAL) (ZLB BEHRING)SANDOGLOBULI [Suspect]
     Dosage: 20 G DAILY IV
     Route: 042
     Dates: start: 20061003, end: 20061003

REACTIONS (3)
  - CYANOSIS [None]
  - DYSPNOEA [None]
  - TACHYCARDIA [None]
